FAERS Safety Report 21661586 (Version 1)
Quarter: 2022Q4

REPORT INFORMATION
  Report Type: Spontaneous
  Country: DE (occurrence: DE)
  Receive Date: 20221130
  Receipt Date: 20221130
  Transmission Date: 20230113
  Serious: Yes (Hospitalization)
  Sender: FDA-Public Use
  Company Number: None

PATIENT
  Age: 83 Year
  Sex: Female
  Weight: 57 kg

DRUGS (12)
  1. APIXABAN [Suspect]
     Active Substance: APIXABAN
     Indication: Product used for unknown indication
     Dosage: 2.5 MG, 1-0-1-0, TABLET
  2. INSULIN GLARGINE [Suspect]
     Active Substance: INSULIN GLARGINE
     Indication: Product used for unknown indication
     Dosage: 1 IU, 0-0-14-0, SOLUTION FOR INJECTION/INFUSION
  3. TORSEMIDE [Suspect]
     Active Substance: TORSEMIDE
     Indication: Product used for unknown indication
     Dosage: 5 MG, 2-2-0-0, TABLET
  4. PANTOPRAZOLE [Concomitant]
     Active Substance: PANTOPRAZOLE
     Dosage: 40 MG, 1-0-0-0, PROLONGED-RELEASE TABLET
  5. METAMIZOLE [Concomitant]
     Active Substance: METAMIZOLE
     Dosage: 750 MG, 1-1-1-1, DROPS
  6. LERCANIDIPINE [Concomitant]
     Active Substance: LERCANIDIPINE
     Dosage: 10 MG, 1-0-0-0, TABLET
  7. IBANDRONIC ACID [Concomitant]
     Active Substance: IBANDRONIC ACID
     Dosage: 3 MG, ACCORDING TO THE SCHEME, SOLUTION FOR INJECTION/INFUSION
  8. ATORVASTATIN [Concomitant]
     Active Substance: ATORVASTATIN
     Dosage: 10 MG, 0-0-1-0, TABLET
  9. SITAGLIPTIN [Concomitant]
     Active Substance: SITAGLIPTIN
     Dosage: 100 MG, 1-0-0-0, TABLET
  10. POTASSIUM CHLORIDE [Concomitant]
     Active Substance: POTASSIUM CHLORIDE
     Dosage: 600 MG, 1-0-0-0, CAPSULES
  11. BISOPROLOL [Concomitant]
     Active Substance: BISOPROLOL
     Dosage: 2.5 MG, 2-0-1-0, TABLET
  12. LORAZEPAM [Concomitant]
     Active Substance: LORAZEPAM
     Dosage: 1 MG, 0-0-0-1, ORODISPERSIBLE TABLETS

REACTIONS (7)
  - Feeling cold [Unknown]
  - Dysaesthesia [Unknown]
  - Hypokalaemia [Unknown]
  - Atrial thrombosis [Unknown]
  - Peripheral embolism [Unknown]
  - Peripheral ischaemia [Unknown]
  - Pain in extremity [Unknown]
